FAERS Safety Report 6916629-2 (Version None)
Quarter: 2010Q3

REPORT INFORMATION
  Report Type: 
  Country: None (occurrence: None)
  Receive Date: 20100810
  Receipt Date: 20100729
  Transmission Date: 20110219
  Serious: Yes (Hospitalization, Other)
  Sender: FDA-Public Use
  Company Number: US-ROCHE-701337

PATIENT
  Sex: Male
  Weight: 63.5 kg

DRUGS (5)
  1. ACCUTANE [Suspect]
     Dosage: STRENGTH: 20 MG AND 40 MG; FORM: PILL
     Route: 065
     Dates: start: 19981116, end: 19990316
  2. WELLBUTRIN [Concomitant]
  3. CEFACLOR [Concomitant]
  4. DESQUAM-X [Concomitant]
  5. ZYRTEC [Concomitant]

REACTIONS (8)
  - ANAL FISSURE [None]
  - BLOOD CHOLESTEROL INCREASED [None]
  - BLOOD GLUCOSE INCREASED [None]
  - BLOOD TRIGLYCERIDES INCREASED [None]
  - COLITIS ULCERATIVE [None]
  - CROHN'S DISEASE [None]
  - DEPRESSION [None]
  - INFLAMMATORY BOWEL DISEASE [None]
